FAERS Safety Report 5723640-6 (Version None)
Quarter: 2008Q2

REPORT INFORMATION
  Report Type: 
  Country: None (occurrence: None)
  Receive Date: 20080429
  Receipt Date: 20080429
  Transmission Date: 20081010
  Serious: Yes (Other)
  Sender: FDA-Public Use
  Company Number: None

PATIENT
  Age: 59 Year
  Sex: Male
  Weight: 96 kg

DRUGS (1)
  1. VARENICLINE [Suspect]
     Dosage: 0.5MG BID PO
     Route: 048
     Dates: start: 20071212, end: 20080226

REACTIONS (3)
  - ANXIETY [None]
  - IRRITABILITY [None]
  - SUICIDAL IDEATION [None]
